FAERS Safety Report 17611624 (Version 4)
Quarter: 2020Q4

REPORT INFORMATION
  Report Type: Spontaneous
  Country: US (occurrence: US)
  Receive Date: 20200401
  Receipt Date: 20201111
  Transmission Date: 20210113
  Serious: No
  Sender: FDA-Public Use
  Company Number: US-PFIZER INC-2020131621

PATIENT
  Age: 50 Year
  Sex: Female

DRUGS (2)
  1. XELJANZ XR [Suspect]
     Active Substance: TOFACITINIB CITRATE
     Dosage: 11 MG, UNK
     Dates: start: 20200319
  2. XELJANZ XR [Suspect]
     Active Substance: TOFACITINIB CITRATE
     Indication: RHEUMATOID ARTHRITIS
     Dosage: 11 MG, DAILY

REACTIONS (5)
  - Product dose omission issue [Unknown]
  - Joint injury [Unknown]
  - Musculoskeletal stiffness [Unknown]
  - Neck pain [Unknown]
  - Oropharyngeal pain [Unknown]
